FAERS Safety Report 8238112-7 (Version None)
Quarter: 2012Q1

REPORT INFORMATION
  Report Type: 
  Country: None (occurrence: None)
  Receive Date: 20120327
  Receipt Date: 20120326
  Transmission Date: 20120608
  Serious: Yes (Hospitalization)
  Sender: FDA-Public Use
  Company Number: DE-GLAXOSMITHKLINE-D0074533A

PATIENT
  Sex: Female

DRUGS (1)
  1. DUAC [Suspect]
     Indication: RASH PUSTULAR
     Route: 061
     Dates: start: 20120207

REACTIONS (11)
  - PRURITUS [None]
  - SKIN EXFOLIATION [None]
  - URTICARIA [None]
  - OEDEMA PERIPHERAL [None]
  - DERMATITIS CONTACT [None]
  - ECZEMA [None]
  - HYPOAESTHESIA [None]
  - SWELLING FACE [None]
  - ERYTHEMA [None]
  - PAPULE [None]
  - SKIN LESION [None]
